FAERS Safety Report 23064674 (Version 1)
Quarter: 2023Q4

REPORT INFORMATION
  Report Type: Spontaneous
  Country: US (occurrence: US)
  Receive Date: 20231013
  Receipt Date: 20231013
  Transmission Date: 20240109
  Serious: Yes (Other)
  Sender: FDA-Public Use
  Company Number: US-BIOGEN-2023BI01229978

PATIENT
  Age: 67 Year
  Sex: Male

DRUGS (1)
  1. ADUHELM [Suspect]
     Active Substance: ADUCANUMAB-AVWA
     Indication: Product used for unknown indication
     Route: 050

REACTIONS (5)
  - Myocardial infarction [Unknown]
  - Loss of consciousness [Recovered/Resolved]
  - Heart rate increased [Unknown]
  - Cardiac disorder [Unknown]
  - Inflammation [Unknown]

NARRATIVE: CASE EVENT DATE: 20230901
